FAERS Safety Report 7724344-0 (Version None)
Quarter: 2011Q3

REPORT INFORMATION
  Report Type: 
  Country: None (occurrence: None)
  Receive Date: 20110901
  Receipt Date: 20110823
  Transmission Date: 20111222
  Serious: Yes (Other)
  Sender: FDA-Public Use
  Company Number: CA-JNJFOC-20110810904

PATIENT
  Sex: Male

DRUGS (5)
  1. FOLIC ACID [Concomitant]
  2. PLAQUENIL [Concomitant]
  3. SIMPONI [Suspect]
     Indication: RHEUMATOID ARTHRITIS
     Route: 058
     Dates: start: 20110615
  4. METHOTREXATE [Concomitant]
  5. SIMPONI [Suspect]
     Route: 058
     Dates: start: 20110816

REACTIONS (1)
  - PNEUMONIA [None]
